FAERS Safety Report 20109394 (Version 4)
Quarter: 2022Q2

REPORT INFORMATION
  Report Type: Report from Study
  Country: US (occurrence: US)
  Receive Date: 20211124
  Receipt Date: 20220420
  Transmission Date: 20220720
  Serious: Yes (Hospitalization)
  Sender: FDA-Public Use
  Company Number: US-TAKEDA-2021TUS073620

PATIENT
  Sex: Female
  Weight: 59 kg

DRUGS (50)
  1. GLASSIA [Suspect]
     Active Substance: .ALPHA.1-PROTEINASE INHIBITOR HUMAN
     Indication: Alpha-1 antitrypsin deficiency
     Dosage: 60 MILLIGRAM/KILOGRAM, 1/WEEK
     Route: 042
     Dates: start: 20210216
  2. GLASSIA [Suspect]
     Active Substance: .ALPHA.1-PROTEINASE INHIBITOR HUMAN
     Indication: Alpha-1 antitrypsin deficiency
     Dosage: 60 MILLIGRAM/KILOGRAM, 1/WEEK
     Route: 042
     Dates: start: 20210216
  3. GLASSIA [Suspect]
     Active Substance: .ALPHA.1-PROTEINASE INHIBITOR HUMAN
     Dosage: 60 MILLIGRAM/KILOGRAM, Q4WEEKS
     Route: 042
     Dates: start: 20210216
  4. GLASSIA [Suspect]
     Active Substance: .ALPHA.1-PROTEINASE INHIBITOR HUMAN
     Dosage: 60 MILLIGRAM/KILOGRAM, Q4WEEKS
     Route: 042
     Dates: start: 20210216
  5. GLASSIA [Suspect]
     Active Substance: .ALPHA.1-PROTEINASE INHIBITOR HUMAN
     Dosage: 60 MILLIGRAM/KILOGRAM, 1/WEEK
     Route: 042
  6. GLASSIA [Suspect]
     Active Substance: .ALPHA.1-PROTEINASE INHIBITOR HUMAN
     Dosage: 60 MILLIGRAM/KILOGRAM, 1/WEEK
     Route: 042
  7. GAMMAGARD LIQUID [Suspect]
     Active Substance: HUMAN IMMUNOGLOBULIN G
     Indication: Alpha-1 antitrypsin deficiency
     Dosage: 400 MILLIGRAM/KILOGRAM, Q4WEEKS
     Route: 042
     Dates: start: 20190613
  8. GAMMAGARD LIQUID [Suspect]
     Active Substance: HUMAN IMMUNOGLOBULIN G
     Dosage: 400 MILLIGRAM/KILOGRAM, 1/WEEK
     Route: 042
     Dates: start: 20190613
  9. DIPHENHYDRAMINE [Concomitant]
     Active Substance: DIPHENHYDRAMINE
  10. DALIRESP [Concomitant]
     Active Substance: ROFLUMILAST
  11. RALOXIFENE [Concomitant]
     Active Substance: RALOXIFENE
  12. SODIUM CHLORIDE [Concomitant]
     Active Substance: SODIUM CHLORIDE
  13. EPINEPHRINE ASCORBATE [Concomitant]
  14. FLUTICASONE PROPIONATE [Concomitant]
     Active Substance: FLUTICASONE PROPIONATE
  15. AMLODIPINE BESYLATE [Concomitant]
     Active Substance: AMLODIPINE BESYLATE
  16. ROSUVASTATIN CALCIUM [Concomitant]
     Active Substance: ROSUVASTATIN CALCIUM
  17. EZETIMIBE [Concomitant]
     Active Substance: EZETIMIBE
  18. LIDOCAINE\PRILOCAINE HYDROCHLORIDE [Concomitant]
     Active Substance: LIDOCAINE\PRILOCAINE HYDROCHLORIDE
  19. TRELEGY ELLIPTA [Concomitant]
     Active Substance: FLUTICASONE FUROATE\UMECLIDINIUM BROMIDE\VILANTEROL TRIFENATATE
  20. ACETAMINOPHEN [Concomitant]
     Active Substance: ACETAMINOPHEN
  21. OXYGEN [Concomitant]
     Active Substance: OXYGEN
  22. BYSTOLIC [Concomitant]
     Active Substance: NEBIVOLOL HYDROCHLORIDE
  23. SODIUM CHLORIDE [Concomitant]
     Active Substance: SODIUM CHLORIDE
  24. VASCEPA [Concomitant]
     Active Substance: ICOSAPENT ETHYL
  25. MONTELUKAST SODIUM [Concomitant]
     Active Substance: MONTELUKAST SODIUM
  26. OMEPRAZOLE [Concomitant]
     Active Substance: OMEPRAZOLE
  27. Lmx [Concomitant]
  28. CYMBALTA [Concomitant]
     Active Substance: DULOXETINE HYDROCHLORIDE
  29. ACYCLOVIR [Concomitant]
     Active Substance: ACYCLOVIR
  30. VITAMIN D3 [Concomitant]
     Active Substance: CHOLECALCIFEROL
  31. LEVALBUTEROL TARTRATE [Concomitant]
     Active Substance: LEVALBUTEROL TARTRATE
  32. ZINC [Concomitant]
     Active Substance: ZINC
  33. ZYRTEC [Concomitant]
     Active Substance: CETIRIZINE HYDROCHLORIDE
  34. VITAMIN E [Concomitant]
     Active Substance: .ALPHA.-TOCOPHEROL
  35. BIOTIN [Concomitant]
     Active Substance: BIOTIN
  36. IPRATROPIUM BROMIDE [Concomitant]
     Active Substance: IPRATROPIUM BROMIDE
  37. ALBUTEROL [Concomitant]
     Active Substance: ALBUTEROL
  38. BIFIDOBACTERIUM LONGUM\LACTOBACILLUS ACIDOPHILUS [Concomitant]
     Active Substance: BIFIDOBACTERIUM LONGUM\LACTOBACILLUS ACIDOPHILUS
  39. PECTIN [Concomitant]
     Active Substance: PECTIN
  40. TRICOR [Concomitant]
     Active Substance: FENOFIBRATE
  41. VITAMINS [Concomitant]
     Active Substance: VITAMINS
  42. CALCIUM\VITAMIN D [Concomitant]
     Active Substance: CALCIUM\VITAMIN D
  43. MAGNESIUM [Concomitant]
     Active Substance: MAGNESIUM
  44. HERBALS\TURMERIC [Concomitant]
     Active Substance: HERBALS\TURMERIC
  45. POTASSIUM [Concomitant]
     Active Substance: POTASSIUM
  46. Vitamin a + d [Concomitant]
  47. MUCINEX [Concomitant]
     Active Substance: GUAIFENESIN
  48. VITAMIN C [Concomitant]
     Active Substance: ASCORBIC ACID
  49. CVS COENZYME Q 10 [Concomitant]
  50. LOSARTAN POTASSIUM [Concomitant]
     Active Substance: LOSARTAN POTASSIUM

REACTIONS (7)
  - Lung disorder [Unknown]
  - Chronic obstructive pulmonary disease [Unknown]
  - Arthralgia [Unknown]
  - Lower respiratory tract infection [Unknown]
  - Oropharyngeal pain [Unknown]
  - Cough [Unknown]
  - Rhinorrhoea [Unknown]
